FAERS Safety Report 6943483-5 (Version None)
Quarter: 2010Q3

REPORT INFORMATION
  Report Type: 
  Country: None (occurrence: None)
  Receive Date: 20100823
  Receipt Date: 20100812
  Transmission Date: 20110219
  Serious: Yes (Other)
  Sender: FDA-Public Use
  Company Number: 2009EU003485

PATIENT
  Age: 11 Year
  Sex: Female

DRUGS (3)
  1. PROGRAF [Suspect]
     Indication: LIVER TRANSPLANT
     Dosage: 0.2 MG/KG, OTHER, 0.1 MG/KG, BID, OTHER
     Route: 050
  2. BASILIXIMAB [Concomitant]
  3. METHYLPREDNISOLONE [Concomitant]

REACTIONS (11)
  - DRUG TOXICITY [None]
  - IMMUNOSUPPRESSANT DRUG LEVEL INCREASED [None]
  - LIVER TRANSPLANT [None]
  - LIVER TRANSPLANT REJECTION [None]
  - MULTI-ORGAN FAILURE [None]
  - MYDRIASIS [None]
  - OFF LABEL USE [None]
  - PUPIL FIXED [None]
  - RENAL FAILURE [None]
  - REVERSIBLE POSTERIOR LEUKOENCEPHALOPATHY SYNDROME [None]
  - SURGICAL PROCEDURE REPEATED [None]
